FAERS Safety Report 15672732 (Version 1)
Quarter: 2018Q4

REPORT INFORMATION
  Report Type: Report from Study
  Country: US (occurrence: US)
  Receive Date: 20181129
  Receipt Date: 20181129
  Transmission Date: 20190205
  Serious: Yes (Other)
  Sender: FDA-Public Use
  Company Number: US-TESAROUBC-US-2018TSO03882

PATIENT
  Age: 64 Year
  Sex: Female

DRUGS (4)
  1. ZEJULA [Suspect]
     Active Substance: NIRAPARIB
     Indication: OVARIAN CANCER
     Dosage: 300 MG, QD
     Route: 048
     Dates: start: 20180605
  2. ZEJULA [Suspect]
     Active Substance: NIRAPARIB
     Dosage: 300 MG, UNK
     Dates: start: 20180618, end: 20180730
  3. ZEJULA [Suspect]
     Active Substance: NIRAPARIB
     Dosage: 200 MG, QD PM WITHOUT FOOD
     Route: 048
     Dates: start: 20180803, end: 20180928
  4. ZEJULA [Suspect]
     Active Substance: NIRAPARIB
     Dosage: 200 MG, QD
     Route: 048
     Dates: start: 20180611

REACTIONS (7)
  - Haemoglobin decreased [Unknown]
  - Hypotension [Unknown]
  - Platelet count decreased [Recovered/Resolved]
  - Inappropriate schedule of product administration [Recovered/Resolved]
  - Decreased appetite [Not Recovered/Not Resolved]
  - Alopecia [Recovered/Resolved]
  - Heart rate increased [Unknown]

NARRATIVE: CASE EVENT DATE: 20180605
